FAERS Safety Report 5397132-0 (Version None)
Quarter: 2007Q3

REPORT INFORMATION
  Report Type: 
  Country: None (occurrence: None)
  Receive Date: 20070725
  Receipt Date: 20070711
  Transmission Date: 20080115
  Serious: Yes (Hospitalization)
  Sender: FDA-Public Use
  Company Number: JP-PFIZER INC-2007053740

PATIENT
  Sex: Male

DRUGS (9)
  1. LIPITOR [Suspect]
     Dosage: DAILY DOSE:10MG
     Route: 048
  2. ASPIRIN [Suspect]
     Dosage: DAILY DOSE:100MG-FREQ:DAY
     Route: 048
     Dates: start: 20070427, end: 20070610
  3. ZANTAC 150 [Suspect]
     Dosage: DAILY DOSE:150MG-FREQ:DAY
     Route: 048
     Dates: start: 20070427, end: 20070610
  4. TENORMIN [Suspect]
     Dosage: DAILY DOSE:50MG-FREQ:DAY
     Route: 048
  5. BEPRICOR [Suspect]
     Dosage: DAILY DOSE:100MG-FREQ:DAY
     Route: 048
     Dates: start: 20070427, end: 20070610
  6. SIGMART [Suspect]
     Dosage: DAILY DOSE:15MG-FREQ:DAY
     Route: 048
     Dates: start: 20070427, end: 20070610
  7. LENDORM [Suspect]
     Dosage: DAILY DOSE:.25MG-FREQ:DAY
     Route: 048
  8. WARFARIN SODIUM [Suspect]
     Dosage: DAILY DOSE:.5MG-FREQ:DAY
     Route: 048
     Dates: start: 20070427, end: 20070610
  9. MUCOSOLVAN [Suspect]
     Route: 048

REACTIONS (1)
  - AGRANULOCYTOSIS [None]
